FAERS Safety Report 20490859 (Version 1)
Quarter: 2022Q1

REPORT INFORMATION
  Report Type: Spontaneous
  Country: US (occurrence: US)
  Receive Date: 20220218
  Receipt Date: 20220218
  Transmission Date: 20220424
  Serious: Yes (Hospitalization, Other)
  Sender: FDA-Public Use
  Company Number: US-CADILA HEALTHCARE LIMITED-US-ZYDUS-074741

PATIENT

DRUGS (1)
  1. OXYCODONE HYDROCHLORIDE [Suspect]
     Active Substance: OXYCODONE HYDROCHLORIDE
     Indication: Product used for unknown indication
     Dosage: UNK
     Route: 042

REACTIONS (6)
  - Reaction to excipient [Unknown]
  - Pulmonary alveolar haemorrhage [Unknown]
  - Disseminated intravascular coagulation [Recovering/Resolving]
  - Acute kidney injury [Unknown]
  - Hepatic function abnormal [Unknown]
  - Drug abuse [Unknown]
